FAERS Safety Report 8857676 (Version 3)
Quarter: 2014Q2

REPORT INFORMATION
  Report Type: Spontaneous
  Country: US (occurrence: US)
  Receive Date: 20121024
  Receipt Date: 20131024
  Transmission Date: 20141212
  Serious: Yes (Hospitalization, Other)
  Sender: FDA-Public Use
  Company Number: US-PFIZER INC-2012263944

PATIENT
  Sex: Female

DRUGS (1)
  1. DILANTIN-125 [Suspect]
     Indication: EPILEPSY
     Dosage: UNK

REACTIONS (5)
  - Convulsion [Unknown]
  - Lactose intolerance [Unknown]
  - Weight decreased [Unknown]
  - Malaise [Unknown]
  - Nausea [Unknown]
